FAERS Safety Report 14573677 (Version 2)
Quarter: 2018Q1

REPORT INFORMATION
  Report Type: Spontaneous
  Country: AT (occurrence: AT)
  Receive Date: 20180226
  Receipt Date: 20180316
  Transmission Date: 20180509
  Serious: Yes (Death)
  Sender: FDA-Public Use
  Company Number: AT-ABBVIE-18P-009-2268624-00

PATIENT
  Age: 75 Year
  Sex: Male

DRUGS (8)
  1. VENETOCLAX. [Suspect]
     Active Substance: VENETOCLAX
     Indication: ACUTE MYELOID LEUKAEMIA
     Dosage: FINAL DOSE: 800MG
     Route: 048
     Dates: start: 20170710, end: 20170902
  2. VENETOCLAX. [Suspect]
     Active Substance: VENETOCLAX
     Indication: ESSENTIAL THROMBOCYTHAEMIA
  3. CALCIDURAN [Concomitant]
     Indication: PROPHYLAXIS
     Dosage: 500MG/800 IE
     Route: 048
     Dates: start: 20170902
  4. TORASEMID [Concomitant]
     Active Substance: TORSEMIDE
     Indication: HYPERTENSION
     Route: 048
     Dates: start: 20170902
  5. KCL ZYMA [Concomitant]
     Indication: PROPHYLAXIS
     Route: 048
     Dates: start: 20170902
  6. EUTHYROX [Concomitant]
     Active Substance: LEVOTHYROXINE SODIUM
     Indication: THYROID DISORDER
     Route: 048
     Dates: start: 20170902
  7. UROSIN [Concomitant]
     Active Substance: ALLOPURINOL
     Indication: BLOOD URIC ACID
     Route: 048
     Dates: start: 20170902
  8. SPIRIVA [Concomitant]
     Active Substance: TIOTROPIUM BROMIDE MONOHYDRATE
     Indication: CHRONIC OBSTRUCTIVE PULMONARY DISEASE
     Route: 055
     Dates: start: 20170902

REACTIONS (1)
  - Death [Fatal]

NARRATIVE: CASE EVENT DATE: 20170902
